FAERS Safety Report 14934238 (Version 5)
Quarter: 2019Q4

REPORT INFORMATION
  Report Type: Spontaneous
  Country: US (occurrence: US)
  Receive Date: 20180524
  Receipt Date: 20191003
  Transmission Date: 20200122
  Serious: No
  Sender: FDA-Public Use
  Company Number: US-ASTRAZENECA-2018SE59125

PATIENT
  Age: 30512 Day
  Sex: Male
  Weight: 83.9 kg

DRUGS (1)
  1. BYDUREON [Suspect]
     Active Substance: EXENATIDE
     Indication: TYPE 2 DIABETES MELLITUS
     Route: 058
     Dates: start: 20180420

REACTIONS (6)
  - Device leakage [Unknown]
  - Injection site haemorrhage [Recovered/Resolved]
  - Vascular injury [Unknown]
  - Device issue [Unknown]
  - Wrong technique in device usage process [Unknown]
  - Incorrect dose administered by device [Not Recovered/Not Resolved]

NARRATIVE: CASE EVENT DATE: 20180427
